FAERS Safety Report 23616511 (Version 1)
Quarter: 2024Q1

REPORT INFORMATION
  Report Type: Other
  Country: CN (occurrence: None)
  Receive Date: 20240311
  Receipt Date: 20240311
  Transmission Date: 20240410
  Serious: Yes (Other)
  Sender: FDA-Public Use
  Company Number: CN-ROCHE-3521782

PATIENT

DRUGS (4)
  1. BEVACIZUMAB [Suspect]
     Active Substance: BEVACIZUMAB
     Indication: Gallbladder cancer
     Dosage: DAY 1
     Route: 042
  2. SINTILIMAB [Suspect]
     Active Substance: SINTILIMAB
     Indication: Gallbladder cancer
     Dosage: DAY 1
     Route: 042
  3. GEMCITABINE [Suspect]
     Active Substance: GEMCITABINE
     Indication: Gallbladder cancer
     Dosage: DAY 1
     Route: 042
  4. PACLITAXEL [Suspect]
     Active Substance: PACLITAXEL
     Indication: Gallbladder cancer
     Dosage: DAY 1
     Route: 042

REACTIONS (6)
  - Pneumonitis [Unknown]
  - Fatigue [Unknown]
  - Rash [Unknown]
  - Aspartate aminotransferase increased [Unknown]
  - Pyrexia [Unknown]
  - Platelet count decreased [Unknown]
